FAERS Safety Report 4330180-8 (Version None)
Quarter: 2004Q2

REPORT INFORMATION
  Report Type: 
  Country: None (occurrence: None)
  Receive Date: 20040401
  Receipt Date: 20040317
  Transmission Date: 20050107
  Serious: No
  Sender: FDA-Public Use
  Company Number: 2004-DE-01332GD

PATIENT
  Age: 40 Year
  Sex: Male

DRUGS (7)
  1. MORPHINE SULFATE [Suspect]
     Indication: PAIN
     Dosage: 30 MG Q4H AND 60 MG AT NIGHT
  2. ACETAMINOPHEN [Suspect]
     Indication: PAIN
     Dosage: 6 G (EVERY 4 HOURS)
  3. DICLOFENAC SODIUM [Suspect]
     Indication: PAIN
     Dosage: 150 MG (THRICE DAILY)
  4. LORAZEPAM [Suspect]
     Indication: PAIN
  5. AMITRIPTYLINE HCL [Suspect]
     Indication: PAIN
     Dosage: 50 MG (AT BEDTIME)
  6. KETOROLAC TROMETHAMINE [Suspect]
     Indication: PAIN
     Dosage: 30 MG (THRICE DAILY)
  7. NATRIUMPICOSULFAT THOMAE  (SODIUM PICOSULFATE) [Concomitant]

REACTIONS (4)
  - DRUG EFFECT DECREASED [None]
  - INSOMNIA [None]
  - POST PROCEDURAL COMPLICATION [None]
  - SOMNOLENCE [None]
